FAERS Safety Report 5976224-9 (Version None)
Quarter: 2008Q4

REPORT INFORMATION
  Report Type: 
  Country: None (occurrence: None)
  Receive Date: 20081202
  Receipt Date: 20081120
  Transmission Date: 20090506
  Serious: Yes (Hospitalization)
  Sender: FDA-Public Use
  Company Number: PHHY2008BE29023

PATIENT
  Sex: Female

DRUGS (3)
  1. CATAFLAM [Suspect]
     Indication: POSTOPERATIVE CARE
     Dosage: 3 X 50 MG
     Route: 048
     Dates: start: 20081114, end: 20081117
  2. CATAFLAM [Suspect]
     Dosage: 3 X 50 MG
     Route: 048
     Dates: start: 20081119
  3. EXACYL [Concomitant]
     Dosage: UNK

REACTIONS (6)
  - BLOOD PRESSURE DECREASED [None]
  - COUGH [None]
  - HAEMOGLOBIN DECREASED [None]
  - HEART RATE INCREASED [None]
  - NASOPHARYNGITIS [None]
  - POST PROCEDURAL HAEMORRHAGE [None]
